FAERS Safety Report 15010608 (Version 1)
Quarter: 2018Q2

REPORT INFORMATION
  Report Type: Spontaneous
  Country: JP (occurrence: JP)
  Receive Date: 20180614
  Receipt Date: 20180614
  Transmission Date: 20180711
  Serious: Yes (Death)
  Sender: FDA-Public Use
  Company Number: JP-CELGENEUS-JPN-20180508552

PATIENT
  Age: 77 Year
  Sex: Male

DRUGS (1)
  1. ISTODAX [Suspect]
     Active Substance: ROMIDEPSIN
     Indication: PERIPHERAL T-CELL LYMPHOMA UNSPECIFIED
     Dosage: 14 MILLIGRAM/SQ. METER
     Route: 041
     Dates: start: 20180510, end: 20180524

REACTIONS (2)
  - C-reactive protein increased [Recovered/Resolved]
  - Peripheral T-cell lymphoma unspecified [Fatal]

NARRATIVE: CASE EVENT DATE: 20180516
